FAERS Safety Report 22145806 (Version 1)
Quarter: 2023Q1

REPORT INFORMATION
  Report Type: Spontaneous
  Country: CA (occurrence: CA)
  Receive Date: 20230328
  Receipt Date: 20230328
  Transmission Date: 20230417
  Serious: Yes (Hospitalization)
  Sender: FDA-Public Use
  Company Number: CA-002147023-NVSC2023CA064579

PATIENT
  Age: 9 Year
  Sex: Female

DRUGS (1)
  1. ADALIMUMAB [Suspect]
     Active Substance: ADALIMUMAB
     Indication: Juvenile idiopathic arthritis
     Dosage: 20 MG (1 EVERY 21 DAYS)
     Route: 058

REACTIONS (6)
  - Arthralgia [Recovered/Resolved]
  - Arthritis [Recovered/Resolved]
  - Osteitis [Recovered/Resolved]
  - Pain [Recovered/Resolved]
  - Uveitis [Recovered/Resolved]
  - Drug ineffective [Recovered/Resolved]
